FAERS Safety Report 23958550 (Version 1)
Quarter: 2024Q2

REPORT INFORMATION
  Report Type: Spontaneous
  Country: None (occurrence: JP)
  Receive Date: 20240610
  Receipt Date: 20240610
  Transmission Date: 20240716
  Serious: No
  Sender: FDA-Public Use
  Company Number: JP-SA-2021SA376695

PATIENT

DRUGS (13)
  1. SABRIL [Suspect]
     Active Substance: VIGABATRIN
     Indication: Infantile spasms
     Dosage: 375 MG, BID
     Route: 048
     Dates: start: 20171216, end: 20171218
  2. SABRIL [Suspect]
     Active Substance: VIGABATRIN
     Dosage: 750 MG, BID
     Route: 048
     Dates: start: 20191211, end: 20200204
  3. SABRIL [Suspect]
     Active Substance: VIGABATRIN
     Dosage: 500 MG, BID
     Route: 048
     Dates: start: 20200205
  4. SABRIL [Suspect]
     Active Substance: VIGABATRIN
     Dosage: 250 MG, BID
     Route: 048
     Dates: start: 20171208, end: 20171215
  5. SABRIL [Suspect]
     Active Substance: VIGABATRIN
     Dosage: 250 MG, BID
     Route: 048
     Dates: start: 20180316, end: 20180416
  6. SABRIL [Suspect]
     Active Substance: VIGABATRIN
     Dosage: 500 MG, BID
     Route: 048
     Dates: start: 20180417, end: 20180701
  7. SABRIL [Suspect]
     Active Substance: VIGABATRIN
     Dosage: 1000 MG, BID
     Route: 048
     Dates: start: 20180702, end: 20181130
  8. SABRIL [Suspect]
     Active Substance: VIGABATRIN
     Dosage: 1250 MG, BID
     Route: 048
     Dates: start: 20181201, end: 20190411
  9. SABRIL [Suspect]
     Active Substance: VIGABATRIN
     Dosage: 1500 MG, BID
     Route: 048
     Dates: start: 20190412, end: 20190709
  10. SABRIL [Suspect]
     Active Substance: VIGABATRIN
     Dosage: 1250 MG, BID
     Route: 048
     Dates: start: 20190710, end: 20191001
  11. SABRIL [Suspect]
     Active Substance: VIGABATRIN
     Dosage: 1000 MG, BID
     Route: 048
     Dates: start: 20191002, end: 20191210
  12. VALPROATE SODIUM [Concomitant]
     Active Substance: VALPROATE SODIUM
     Indication: Infantile spasms
     Dosage: DAILY DOSE: 400 MG
     Route: 048
  13. SIROLIMUS [Concomitant]
     Active Substance: SIROLIMUS
     Indication: Infantile spasms
     Dosage: DAILY DOSE: 0.8 G
     Route: 061
     Dates: start: 20181005

REACTIONS (2)
  - Epstein-Barr virus infection [Recovered/Resolved]
  - Glossoptosis [Recovered/Resolved]

NARRATIVE: CASE EVENT DATE: 20171216
